FAERS Safety Report 17052045 (Version 1)
Quarter: 2019Q4

REPORT INFORMATION
  Report Type: Spontaneous
  Country: CN (occurrence: CN)
  Receive Date: 20191120
  Receipt Date: 20191120
  Transmission Date: 20200122
  Serious: Yes (Other)
  Sender: FDA-Public Use
  Company Number: CN-ROCHE-2467857

PATIENT
  Sex: Male

DRUGS (2)
  1. ACTEMRA [Suspect]
     Active Substance: TOCILIZUMAB
     Route: 065
     Dates: start: 20191106
  2. ACTEMRA [Suspect]
     Active Substance: TOCILIZUMAB
     Indication: NODULAR VASCULITIS
     Route: 065
     Dates: start: 20190927

REACTIONS (5)
  - Hypersensitivity [Recovering/Resolving]
  - Off label use [Unknown]
  - Intentional product use issue [Unknown]
  - Anaphylactic shock [Recovering/Resolving]
  - Tachypnoea [Recovering/Resolving]
